FAERS Safety Report 10146058 (Version 2)
Quarter: 2014Q2

REPORT INFORMATION
  Report Type: Spontaneous
  Country: US (occurrence: US)
  Receive Date: 20140501
  Receipt Date: 20140604
  Transmission Date: 20141212
  Serious: Yes (Other)
  Sender: FDA-Public Use
  Company Number: US-ASTELLAS-2014US004294

PATIENT
  Sex: Female

DRUGS (1)
  1. MYRBETRIQ [Suspect]
     Indication: BLADDER SPASM
     Route: 048
     Dates: start: 20140412

REACTIONS (4)
  - Urinary retention [Unknown]
  - Bladder spasm [Unknown]
  - Urinary tract infection [Unknown]
  - Off label use [Unknown]
